FAERS Safety Report 15175745 (Version 3)
Quarter: 2018Q3

REPORT INFORMATION
  Report Type: Spontaneous
  Country: US (occurrence: US)
  Receive Date: 20180720
  Receipt Date: 20180726
  Transmission Date: 20181010
  Serious: Yes (Hospitalization)
  Sender: FDA-Public Use
  Company Number: US-ACTELION-A-US2018-175675

PATIENT
  Age: 85 Year
  Sex: Female

DRUGS (1)
  1. OPSUMIT [Suspect]
     Active Substance: MACITENTAN
     Indication: PULMONARY ARTERIAL HYPERTENSION
     Dosage: 10 MG, QD
     Route: 048
     Dates: start: 20160830

REACTIONS (5)
  - Swelling [Unknown]
  - Chest pain [Recovered/Resolved]
  - Atrial fibrillation [Unknown]
  - Dyspnoea [Recovered/Resolved]
  - Acute left ventricular failure [Recovered/Resolved]
